FAERS Safety Report 7526461-7 (Version None)
Quarter: 2011Q2

REPORT INFORMATION
  Report Type: 
  Country: None (occurrence: None)
  Receive Date: 20110606
  Receipt Date: 20110526
  Transmission Date: 20111010
  Serious: Yes (Other)
  Sender: FDA-Public Use
  Company Number: GB-BAXTER-2011BH017988

PATIENT
  Age: 7 Year

DRUGS (2)
  1. BUSULFAN [Suspect]
     Indication: COMBINED IMMUNODEFICIENCY
     Route: 065
  2. CYCLOPHOSPHAMIDE [Suspect]
     Indication: COMBINED IMMUNODEFICIENCY
     Route: 065

REACTIONS (1)
  - TOOTH HYPOPLASIA [None]
